FAERS Safety Report 8311504-3 (Version None)
Quarter: 2012Q1

REPORT INFORMATION
  Report Type: 
  Country: None (occurrence: None)
  Receive Date: 20120315
  Receipt Date: 20110516
  Transmission Date: 20120608
  Serious: No
  Sender: FDA-Public Use
  Company Number: PHHY2011US42754

PATIENT
  Age: 39 Year
  Sex: Female

DRUGS (7)
  1. XANAX [Concomitant]
  2. PROVIGIL [Concomitant]
  3. GILENYA [Suspect]
     Indication: MULTIPLE SCLEROSIS
     Dosage: 0.5 MG, QD, ORAL
     Route: 048
     Dates: start: 20110330
  4. PREGABALIN [Concomitant]
  5. FLUOXETINE [Concomitant]
  6. LORAZEPAM [Concomitant]
  7. HYDROCODONE BITARTRATE [Concomitant]

REACTIONS (1)
  - MENSTRUATION IRREGULAR [None]
